FAERS Safety Report 9418398 (Version 1)
Quarter: 2013Q3

REPORT INFORMATION
  Report Type: Spontaneous
  Country: US (occurrence: US)
  Receive Date: 20130725
  Receipt Date: 20130725
  Transmission Date: 20140515
  Serious: No
  Sender: FDA-Public Use
  Company Number: US-BIOGENIDEC-2013BI019274

PATIENT
  Age: 50 Year
  Sex: Female

DRUGS (3)
  1. AVONEX [Suspect]
     Indication: MULTIPLE SCLEROSIS
     Route: 030
     Dates: start: 20060613, end: 201303
  2. AVONEX [Suspect]
     Indication: MULTIPLE SCLEROSIS
     Route: 030
     Dates: start: 201303, end: 201305
  3. AMPYRA [Concomitant]
     Indication: MULTIPLE SCLEROSIS
     Dates: start: 2013, end: 2013

REACTIONS (6)
  - Myopia [Not Recovered/Not Resolved]
  - Gait disturbance [Recovered/Resolved with Sequelae]
  - Photopsia [Recovered/Resolved with Sequelae]
  - Alopecia [Not Recovered/Not Resolved]
  - Fatigue [Recovered/Resolved]
  - Drug ineffective [Not Recovered/Not Resolved]
